FAERS Safety Report 8250053-8 (Version None)
Quarter: 2012Q2

REPORT INFORMATION
  Report Type: 
  Country: None (occurrence: None)
  Receive Date: 20120402
  Receipt Date: 20120326
  Transmission Date: 20120825
  Serious: Yes (Other)
  Sender: FDA-Public Use
  Company Number: RS-ASTRAZENECA-2012SE20046

PATIENT
  Age: 67 Year
  Sex: Female

DRUGS (2)
  1. PLENDIL [Suspect]
     Route: 048
  2. PLENDIL [Suspect]
     Route: 048

REACTIONS (1)
  - HYPOTHERMIA [None]
